FAERS Safety Report 7963225-4 (Version None)
Quarter: 2011Q4

REPORT INFORMATION
  Report Type: 
  Country: None (occurrence: None)
  Receive Date: 20111208
  Receipt Date: 20111130
  Transmission Date: 20120403
  Serious: No
  Sender: FDA-Public Use
  Company Number: US-BIOGENIDEC-2011BI045351

PATIENT
  Sex: Female

DRUGS (3)
  1. AVONEX [Suspect]
     Indication: MULTIPLE SCLEROSIS
     Route: 030
     Dates: start: 20030101
  2. AVONEX [Suspect]
     Route: 030
  3. AVONEX [Suspect]
     Route: 030
     Dates: start: 20010118

REACTIONS (6)
  - VITREOUS FLOATERS [None]
  - INFLUENZA LIKE ILLNESS [None]
  - INTRAOCULAR LENS IMPLANT [None]
  - PHOTOPHOBIA [None]
  - MACULAR FIBROSIS [None]
  - VISUAL FIELD DEFECT [None]
